FAERS Safety Report 9878149 (Version 1)
Quarter: 2014Q1

REPORT INFORMATION
  Report Type: Spontaneous
  Country: US (occurrence: US)
  Receive Date: 20140206
  Receipt Date: 20140206
  Transmission Date: 20141002
  Serious: No
  Sender: FDA-Public Use
  Company Number: US-BAYER-2014-010438

PATIENT
  Sex: Male

DRUGS (4)
  1. STAXYN (FDT/ODT) [Suspect]
     Indication: ERECTILE DYSFUNCTION
     Route: 048
  2. OMEPRAZOLE [Concomitant]
     Indication: GASTROOESOPHAGEAL REFLUX DISEASE
     Dosage: 20 MG, QOD
  3. BABY ASPIRIN [Concomitant]
     Dosage: UNK UNK, QD
  4. VITAMINUM [CALCIUM PANTOTHENATE,NICOTINAMIDE,PYRIDOXINE,RIBOFLAVIN [Concomitant]
     Dosage: UNK UNK, QD

REACTIONS (2)
  - Therapeutic response delayed [None]
  - Drug ineffective [None]
